FAERS Safety Report 7030348-6 (Version None)
Quarter: 2010Q4

REPORT INFORMATION
  Report Type: 
  Country: None (occurrence: None)
  Receive Date: 20101006
  Receipt Date: 20100928
  Transmission Date: 20110411
  Serious: Yes (Hospitalization, Other)
  Sender: FDA-Public Use
  Company Number: BR-US-EMD SERONO, INC.-7005729

PATIENT
  Sex: Male

DRUGS (12)
  1. REBIF [Suspect]
     Indication: MULTIPLE SCLEROSIS
     Route: 058
     Dates: start: 20100416
  2. LYRICA [Concomitant]
  3. CONDROFLEX [Concomitant]
  4. EXODUS [Concomitant]
  5. VALIUM [Concomitant]
  6. OMEPRAZOLE [Concomitant]
  7. CENTRUM [Concomitant]
  8. SERTRALINE HYDROCHLORIDE [Concomitant]
  9. TRAMADOL HCL [Concomitant]
  10. FLAVONID [Concomitant]
  11. PREDSIN [Concomitant]
  12. HISPERIDINE [Concomitant]

REACTIONS (5)
  - DERMATITIS [None]
  - ERYSIPELAS [None]
  - NODULE [None]
  - NOSOCOMIAL INFECTION [None]
  - WOUND COMPLICATION [None]
